FAERS Safety Report 22526463 (Version 1)
Quarter: 2023Q2

REPORT INFORMATION
  Report Type: Spontaneous
  Country: GB (occurrence: GB)
  Receive Date: 20230606
  Receipt Date: 20230606
  Transmission Date: 20230722
  Serious: Yes (Hospitalization, Other)
  Sender: FDA-Public Use
  Company Number: GB-MYLANLABS-2022M1097447

PATIENT
  Sex: Male

DRUGS (2)
  1. CLOZARIL [Suspect]
     Active Substance: CLOZAPINE
     Indication: Schizophrenia
     Dosage: UNK
     Route: 048
     Dates: start: 20210809, end: 20220922
  2. CLOZARIL [Suspect]
     Active Substance: CLOZAPINE
     Dosage: UNK
     Route: 048
     Dates: start: 20221111, end: 20221128

REACTIONS (10)
  - Malaise [Not Recovered/Not Resolved]
  - Sepsis [Unknown]
  - Confusional state [Unknown]
  - Psychotic disorder [Unknown]
  - Hip fracture [Unknown]
  - Temporal lobe epilepsy [Unknown]
  - Seizure [Unknown]
  - Asthenia [Unknown]
  - Urinary tract infection [Unknown]
  - Refusal of treatment by patient [Unknown]
